FAERS Safety Report 19555143 (Version 2)
Quarter: 2021Q4

REPORT INFORMATION
  Report Type: Spontaneous
  Country: US (occurrence: US)
  Receive Date: 20210716
  Receipt Date: 20211217
  Transmission Date: 20220303
  Serious: Yes (Hospitalization)
  Sender: FDA-Public Use
  Company Number: US-ORGANON-O2107USA001100

PATIENT
  Age: 63 Year
  Sex: Female
  Weight: 47.619 kg

DRUGS (14)
  1. ZETIA [Suspect]
     Active Substance: EZETIMIBE
     Indication: Blood cholesterol
     Dosage: 5 MILLIGRAM, QD
     Route: 048
  2. SINEMET [Suspect]
     Active Substance: CARBIDOPA\LEVODOPA
     Dosage: 5 TIMES/DAY (^SUSPECT NAME: CARBIDOPA/LEVODOPA ^150^)
     Route: 048
     Dates: end: 202103
  3. SINEMET [Suspect]
     Active Substance: CARBIDOPA\LEVODOPA
     Dosage: 4 TIMES/DAY (SUSPECT NAME: CARBIDOPA/LEVODOPA ^150^)
     Dates: start: 202103
  4. GOCOVRI [Suspect]
     Active Substance: AMANTADINE
     Indication: Dyskinesia
     Dosage: 274 MILLIGRAM, AT BED TIME
     Route: 048
     Dates: start: 20181030
  5. AMANTADINE [Suspect]
     Active Substance: AMANTADINE
     Dosage: UNK
  6. INBRIJA [Suspect]
     Active Substance: LEVODOPA
     Dosage: UNK
  7. ROPINIROLE [Suspect]
     Active Substance: ROPINIROLE
     Indication: Hallucination
     Dosage: 5 MILLIGRAM
     Dates: start: 202103
  8. CLONAZEPAM [Suspect]
     Active Substance: CLONAZEPAM
     Dosage: 5 MILLIGRAM AT BED TIME
  9. VITAMIN B12 [Suspect]
     Active Substance: CYANOCOBALAMIN
     Indication: Muscle spasms
  10. VITAMIN D3 [Suspect]
     Active Substance: CHOLECALCIFEROL
  11. PAROXETINE [Suspect]
     Active Substance: PAROXETINE
     Dosage: UNK
  12. CYCLOBENZAPRINE [Suspect]
     Active Substance: CYCLOBENZAPRINE
     Indication: Muscle spasms
     Dosage: UNK
  13. QUETIAPINE [Suspect]
     Active Substance: QUETIAPINE
     Indication: Hallucination
     Dosage: UNK
  14. ROPINIROLE [Suspect]
     Active Substance: ROPINIROLE
     Dosage: 3 MILLIGRAM, 3 TIMES PER DAY
     Dates: start: 202103

REACTIONS (4)
  - Panic attack [Unknown]
  - Deep brain stimulation [Recovered/Resolved]
  - Hypokinesia [Unknown]
  - Therapeutic product effect incomplete [Unknown]

NARRATIVE: CASE EVENT DATE: 20210301
